FAERS Safety Report 15222141 (Version 2)
Quarter: 2018Q3

REPORT INFORMATION
  Report Type: Spontaneous
  Country: IN (occurrence: IN)
  Receive Date: 20180731
  Receipt Date: 20180731
  Transmission Date: 20181010
  Serious: Yes (Other)
  Sender: FDA-Public Use
  Company Number: PHHY2018IN051652

PATIENT
  Age: 60 Year
  Sex: Female

DRUGS (2)
  1. THYROXIN [Concomitant]
     Active Substance: LEVOTHYROXINE
     Indication: POSTPARTUM HYPOPITUITARISM
     Dosage: UNK
     Route: 065
  2. PREDNISOLONE. [Suspect]
     Active Substance: PREDNISOLONE
     Indication: POSTPARTUM HYPOPITUITARISM
     Dosage: 5?7.5MG QD
     Route: 048

REACTIONS (3)
  - Osteonecrosis [Unknown]
  - Arthralgia [Unknown]
  - Product use in unapproved indication [Unknown]
